FAERS Safety Report 25099790 (Version 3)
Quarter: 2025Q3

REPORT INFORMATION
  Report Type: Spontaneous
  Country: US (occurrence: US)
  Receive Date: 20250320
  Receipt Date: 20250905
  Transmission Date: 20251020
  Serious: No
  Sender: BIOGEN
  Company Number: US-BIOGEN-2022BI01110994

PATIENT
  Sex: Female

DRUGS (9)
  1. VUMERITY [Suspect]
     Active Substance: DIROXIMEL FUMARATE
     Indication: Multiple sclerosis
     Dosage: STARTING DOSE
     Route: 050
     Dates: start: 20201214
  2. VUMERITY [Suspect]
     Active Substance: DIROXIMEL FUMARATE
     Dosage: MAINTENANCE DOSE
     Route: 050
  3. CONCERTA [Concomitant]
     Active Substance: METHYLPHENIDATE HYDROCHLORIDE
     Indication: Product used for unknown indication
     Route: 050
  4. PRAMIPEXOLE DIHYDROCHLORIDE [Concomitant]
     Active Substance: PRAMIPEXOLE DIHYDROCHLORIDE
     Route: 050
  5. ADDERALL XR [Concomitant]
     Active Substance: AMPHETAMINE ASPARTATE\AMPHETAMINE SULFATE\DEXTROAMPHETAMINE SACCHARATE\DEXTROAMPHETAMINE SULFATE
     Route: 050
  6. CLARITIN [Concomitant]
     Active Substance: LORATADINE
     Route: 050
  7. FLEXERIL [Concomitant]
     Active Substance: CYCLOBENZAPRINE HYDROCHLORIDE
     Route: 050
  8. VITAMINS [Concomitant]
     Active Substance: VITAMINS
     Route: 050
  9. MYRBETRIQ [Concomitant]
     Active Substance: MIRABEGRON
     Route: 050

REACTIONS (8)
  - Product dose omission issue [Not Recovered/Not Resolved]
  - Vision blurred [Not Recovered/Not Resolved]
  - Electric shock sensation [Unknown]
  - Gait disturbance [Unknown]
  - Asthenia [Unknown]
  - Fatigue [Unknown]
  - Hypersomnia [Unknown]
  - Blood iron abnormal [Unknown]

NARRATIVE: CASE EVENT DATE: 20220101
